FAERS Safety Report 20505731 (Version 4)
Quarter: 2022Q3

REPORT INFORMATION
  Report Type: Spontaneous
  Country: US (occurrence: US)
  Receive Date: 20220223
  Receipt Date: 20220711
  Transmission Date: 20221027
  Serious: Yes (Hospitalization, Other)
  Sender: FDA-Public Use
  Company Number: US-ADVANZ PHARMA-202202000926

PATIENT

DRUGS (19)
  1. HYDROXYCHLOROQUINE [Suspect]
     Active Substance: HYDROXYCHLOROQUINE
     Indication: Pancreatic carcinoma metastatic
     Dosage: 600 MG, BID  (200MG X 3 TABLETS) EVERY 1 DAY
     Route: 048
     Dates: start: 20211229, end: 20220201
  2. HYDROXYCHLOROQUINE [Suspect]
     Active Substance: HYDROXYCHLOROQUINE
     Dosage: 600 MG, BID  (200MG X 3 TABLETS) EVERY 1 DAY
     Route: 048
     Dates: start: 20220204
  3. IPILIMUMAB [Suspect]
     Active Substance: IPILIMUMAB
     Indication: Pancreatic carcinoma metastatic
     Dosage: 1 MG/KG DAY 22 OF EACH 6-WEEK X 2 CYCLES, EVERY 6 WEEKS(EVERY 6 WEEKS)
     Route: 042
     Dates: start: 20220118, end: 20220118
  4. PACLITAXEL [Suspect]
     Active Substance: PACLITAXEL
     Indication: Pancreatic carcinoma metastatic
     Dosage: 125 MG/M2 (DAYS 1, 8, 22 AND 29 OF EACH 6-WEEK CYCLE (2 WEEKS ON, 1 WEEK OFF))
     Route: 042
     Dates: start: 20211229, end: 20220125
  5. GEMCITABINE [Suspect]
     Active Substance: GEMCITABINE
     Indication: Pancreatic carcinoma metastatic
     Dosage: 1000 MG/M2 (DAYS 1, 8, 22 AND 29 OF EACH 6-WEEK CYCLE (2WEEKS ON, 1WEEK OFF ))
     Route: 042
     Dates: start: 20211229, end: 20220125
  6. DEXMETHYLPHENIDATE HYDROCHLORIDE [Concomitant]
     Active Substance: DEXMETHYLPHENIDATE HYDROCHLORIDE
     Indication: Attention deficit hyperactivity disorder
     Dosage: 20 MG, QD (20 MG IN THE MORNING, EVERY 1 DAYS)
     Route: 048
     Dates: start: 20181201
  7. ESCITALOPRAM [Concomitant]
     Active Substance: ESCITALOPRAM OXALATE
     Indication: Anxiety
     Dosage: 10 MG, QD
     Route: 048
     Dates: start: 20201201
  8. LEVOTHYROXINE SODIUM [Concomitant]
     Active Substance: LEVOTHYROXINE SODIUM
     Indication: Hypothyroidism
     Dosage: 88 UG, QD
     Route: 048
     Dates: start: 20201201
  9. OMEPRAZOLE [Concomitant]
     Active Substance: OMEPRAZOLE
     Indication: Gastrooesophageal reflux disease
     Dosage: 40 MG, BID
     Route: 048
     Dates: start: 20210901
  10. ROSUVASTATIN [Concomitant]
     Active Substance: ROSUVASTATIN
     Indication: High density lipoprotein
     Dosage: 5 MG, QD
     Route: 048
     Dates: start: 20200101
  11. ALIGN [Concomitant]
     Active Substance: BIFIDOBACTERIUM LONGUM SUBSP. INFANTIS
     Indication: Probiotic therapy
     Dosage: 4 MG, QD
     Route: 048
     Dates: start: 20211101
  12. ALPRAZOLAM [Concomitant]
     Active Substance: ALPRAZOLAM
     Indication: Anxiety
     Dosage: 0.25 MG, QD AT BEDTIME
     Route: 048
     Dates: start: 20200101
  13. PROCHLORPERAZINE [Concomitant]
     Active Substance: PROCHLORPERAZINE
     Indication: Nausea
     Dosage: 10 MG, PRN  Q6H
     Route: 048
     Dates: start: 20211229
  14. OLANZAPINE [Concomitant]
     Active Substance: OLANZAPINE
     Indication: Insomnia
     Dosage: 2.5 MG, QD  AT BEDTIME
     Route: 048
     Dates: start: 20220106
  15. POTASSIUM CHLORIDE [Concomitant]
     Active Substance: POTASSIUM CHLORIDE
     Indication: Blood potassium decreased
     Dosage: 40 MEQ, QD FOR 3 DAYS
     Route: 048
     Dates: start: 20220101
  16. ACETAMINOPHEN [Concomitant]
     Active Substance: ACETAMINOPHEN
     Indication: Pain
     Dosage: 1000 MG, PRN (2/DAY)
     Route: 048
     Dates: start: 20211101
  17. ACETAMINOPHEN [Concomitant]
     Active Substance: ACETAMINOPHEN
     Indication: Headache
  18. CREON [Concomitant]
     Active Substance: PANCRELIPASE AMYLASE\PANCRELIPASE LIPASE\PANCRELIPASE PROTEASE
     Indication: Pancreatic failure
     Dosage: 12000 UNITS TAKE 3-4 CAPSULES WITH  MEALS, 3 WITH SNACKS, 6/DAYS
     Route: 048
     Dates: start: 20211227
  19. BANATROL PLUS [Concomitant]
     Indication: Diarrhoea
     Dosage: UNK, QD 1 PACKET
     Route: 048
     Dates: start: 20220101

REACTIONS (6)
  - Clostridium difficile infection [Unknown]
  - Dehydration [Not Recovered/Not Resolved]
  - Anaemia [Recovered/Resolved]
  - Hypokalaemia [Recovered/Resolved]
  - Hypomagnesaemia [Recovered/Resolved]
  - Hypocalcaemia [Recovered/Resolved]

NARRATIVE: CASE EVENT DATE: 20220201
